FAERS Safety Report 9202740 (Version 1)
Quarter: 2013Q2

REPORT INFORMATION
  Report Type: Spontaneous
  Country: GF (occurrence: GF)
  Receive Date: 20130401
  Receipt Date: 20130401
  Transmission Date: 20140414
  Serious: Yes (Hospitalization)
  Sender: FDA-Public Use
  Company Number: GF-MYLANLABS-2013S1006207

PATIENT
  Age: 18 Year
  Sex: Female

DRUGS (3)
  1. MAGNESIUM SULFATE [Suspect]
     Indication: PRE-ECLAMPSIA
     Dosage: 3G BOLUS FOLLOWED BY 1 G/H
     Route: 065
  2. NICARDIPINE [Suspect]
     Indication: PRE-ECLAMPSIA
     Dosage: 3 MG/H
     Route: 050
  3. BETAMETHASONE [Concomitant]
     Indication: MATERNAL THERAPY TO ENHANCE FOETAL LUNG MATURITY
     Route: 065

REACTIONS (3)
  - Cardiac failure acute [Recovered/Resolved]
  - Oliguria [Recovered/Resolved]
  - Exposure during pregnancy [Recovered/Resolved]
